FAERS Safety Report 7210095-8 (Version None)
Quarter: 2011Q1

REPORT INFORMATION
  Report Type: 
  Country: None (occurrence: None)
  Receive Date: 20110105
  Receipt Date: 20101229
  Transmission Date: 20110831
  Serious: Yes (Death, Hospitalization, Disabling, Other)
  Sender: FDA-Public Use
  Company Number: BR-BAYER-BR-2007-012600

PATIENT
  Sex: Female

DRUGS (11)
  1. DIAZEPAM [Concomitant]
     Indication: MUSCLE SPASMS
     Dosage: UNK UNK, BID
     Route: 048
     Dates: start: 19940101, end: 20101218
  2. TEGRETOL [Concomitant]
     Indication: PAIN
     Dosage: 1 TABLET AT NIGHT
     Route: 048
     Dates: start: 20090201, end: 20101218
  3. TRAMAL [Concomitant]
     Indication: BACK PAIN
  4. BETAFERON [Suspect]
     Indication: MULTIPLE SCLEROSIS
     Dosage: BETAJECT
     Route: 058
     Dates: start: 20000101, end: 20101211
  5. FLUOXETINE [Concomitant]
     Indication: DEPRESSION
     Dosage: 1 TAB(S), 3X/DAY [DAILY DOSE: 3 TAB(S)]
     Route: 048
     Dates: start: 19990101, end: 20101218
  6. METADON [Concomitant]
     Indication: PAIN
     Dosage: 10 MG, QD
     Route: 048
     Dates: start: 20010101, end: 20101218
  7. TRAMAL [Concomitant]
     Indication: PAIN
     Dosage: 3 TABLETS / DAY - AS USED DOSE: UNK
     Route: 048
     Dates: start: 20080101, end: 20101218
  8. BACLOFEN [Concomitant]
     Indication: MUSCLE SPASMS
     Dosage: 3 TABLETS / DAY
     Route: 048
     Dates: start: 19990101, end: 20101218
  9. METHADONE HYDROCHLORIDE [Concomitant]
     Dosage: 1 TAB(S), 2X/DAY [DAILY DOSE: 2 TAB(S)]
     Route: 048
     Dates: end: 20101218
  10. DIAZEPAM [Concomitant]
     Indication: DEPRESSION
     Dosage: 1 TAB(S), 3X/DAY [DAILY DOSE: 3 TAB(S)]
     Route: 048
     Dates: start: 19940101, end: 20101218
  11. AMPLICTIL [Concomitant]
     Indication: MUSCLE RELAXANT THERAPY
     Dosage: 1 TABLET AT NIGHT
     Route: 048
     Dates: start: 20090401, end: 20101218

REACTIONS (26)
  - COORDINATION ABNORMAL [None]
  - PNEUMONIA [None]
  - MULTIPLE SCLEROSIS [None]
  - MOVEMENT DISORDER [None]
  - MUSCLE SPASMS [None]
  - ARTHRALGIA [None]
  - ABASIA [None]
  - MUSCULAR WEAKNESS [None]
  - NECK PAIN [None]
  - IRRITABILITY [None]
  - DEPRESSION [None]
  - MULTI-ORGAN FAILURE [None]
  - COMA [None]
  - QUADRIPARESIS [None]
  - FAECAL INCONTINENCE [None]
  - SUICIDAL IDEATION [None]
  - PAIN IN EXTREMITY [None]
  - FATIGUE [None]
  - RESPIRATORY ARREST [None]
  - HYPOAESTHESIA [None]
  - DECREASED APPETITE [None]
  - CARDIAC ARREST [None]
  - DEPRESSED MOOD [None]
  - URINARY INCONTINENCE [None]
  - MULTIPLE SCLEROSIS RELAPSE [None]
  - ACARODERMATITIS [None]
